FAERS Safety Report 7730607-5 (Version None)
Quarter: 2011Q3

REPORT INFORMATION
  Report Type: 
  Country: None (occurrence: None)
  Receive Date: 20110906
  Receipt Date: 20110822
  Transmission Date: 20111222
  Serious: No
  Sender: FDA-Public Use
  Company Number: US-ROXANE LABORATORIES, INC.-2011-RO-01053RO

PATIENT
  Sex: Female
  Weight: 46 kg

DRUGS (8)
  1. GEODONE [Concomitant]
     Indication: BIPOLAR DISORDER
     Dosage: 80 MG
  2. VYTORIN [Concomitant]
     Indication: HYPERCHOLESTEROLAEMIA
  3. BUPRENORPHINE HCL [Suspect]
     Indication: DRUG DEPENDENCE
     Dosage: 6 MG
     Route: 060
     Dates: start: 20110718, end: 20110824
  4. KLONOPIN [Concomitant]
     Indication: ANXIETY
  5. RITALIN [Concomitant]
     Indication: ATTENTION DEFICIT/HYPERACTIVITY DISORDER
     Dosage: 10 MG
  6. LEXAPRO [Concomitant]
     Indication: DEPRESSION
     Dosage: 20 MG
  7. NEXIUM [Concomitant]
     Indication: GASTROOESOPHAGEAL REFLUX DISEASE
     Dosage: 40 MG
  8. TOPROL-XL [Concomitant]
     Indication: HYPERTENSION
     Dosage: 25 MG

REACTIONS (5)
  - SOMNOLENCE [None]
  - HEADACHE [None]
  - ASTHENIA [None]
  - TREMOR [None]
  - NAUSEA [None]
